FAERS Safety Report 16941585 (Version 1)
Quarter: 2019Q4

REPORT INFORMATION
  Report Type: Spontaneous
  Country: US (occurrence: US)
  Receive Date: 20191020
  Receipt Date: 20191020
  Transmission Date: 20200122
  Serious: Yes (Other)
  Sender: FDA-Public Use
  Company Number: None

PATIENT
  Age: 74 Year
  Sex: Female

DRUGS (2)
  1. PREVIDENT 5000 PLUS SPEARMINT [Suspect]
     Active Substance: SODIUM FLUORIDE
  2. TOM^S TP NAT ANTIPLAQUE + WHITENING FLUORIDE FREE PASTE FENNEL [Suspect]
     Active Substance: COSMETICS

REACTIONS (3)
  - Skin burning sensation [None]
  - Precancerous lesion [None]
  - Oral discomfort [None]

NARRATIVE: CASE EVENT DATE: 20190731
